FAERS Safety Report 10432694 (Version 1)
Quarter: 2014Q3

REPORT INFORMATION
  Report Type: Spontaneous
  Country: US (occurrence: None)
  Receive Date: 20140903
  Receipt Date: 20140903
  Transmission Date: 20150326
  Serious: Yes (Hospitalization, Other)
  Sender: FDA-Public Use
  Company Number: 2013US002527

PATIENT
  Age: 83 Year
  Sex: Female
  Weight: 60.5 kg

DRUGS (13)
  1. LIPITOR [Concomitant]
     Active Substance: ATORVASTATIN CALCIUM
  2. HYDROCHLOROTHIAZIDE. [Concomitant]
     Active Substance: HYDROCHLOROTHIAZIDE
  3. NIFEDIPINE. [Concomitant]
     Active Substance: NIFEDIPINE
  4. LIDOCAINE (LIDOCAINE HYDROCHLORIDE) [Concomitant]
  5. OMEPRAZOLE. [Concomitant]
     Active Substance: OMEPRAZOLE
  6. LISINOPRIL (LISINOPRIL DIHYDRATE) [Concomitant]
  7. CLONIDINE HCI (CLONIDINE HYDROCHLORIDE) [Concomitant]
  8. ACTONEL (RISEDRONATE SODIUM) [Concomitant]
  9. LEVOTHYROXINE (LEVOTHYROXINE SODIUM) [Concomitant]
  10. PONATINIB [Suspect]
     Active Substance: PONATINIB
     Indication: CHRONIC MYELOID LEUKAEMIA
     Route: 048
     Dates: start: 20110630
  11. DOXAZOSIN MESILATE [Concomitant]
     Active Substance: DOXAZOSIN MESYLATE
  12. VERSED (MIDAZOLAM HYDROCHLORIDE) [Concomitant]
  13. CARVEDILOL. [Concomitant]
     Active Substance: CARVEDILOL

REACTIONS (2)
  - Cerebrovascular accident [None]
  - Blood pressure increased [None]

NARRATIVE: CASE EVENT DATE: 20120812
